FAERS Safety Report 14024946 (Version 1)
Quarter: 2017Q3

REPORT INFORMATION
  Report Type: Spontaneous
  Country: CN (occurrence: CN)
  Receive Date: 20170929
  Receipt Date: 20170929
  Transmission Date: 20171128
  Serious: Yes (Other)
  Sender: FDA-Public Use
  Company Number: CN-JNJFOC-20170929700

PATIENT
  Age: 19 Year
  Sex: Female
  Weight: 50 kg

DRUGS (3)
  1. DALACINA [Concomitant]
     Indication: INFECTION
     Route: 041
     Dates: start: 20170816, end: 20170819
  2. XARELTO [Suspect]
     Active Substance: RIVAROXABAN
     Indication: THROMBOSIS PROPHYLAXIS
     Route: 048
     Dates: start: 20170818, end: 20170818
  3. SODIUM CHLORIDE. [Concomitant]
     Active Substance: SODIUM CHLORIDE
     Indication: HYPERSENSITIVITY
     Route: 041
     Dates: start: 20170816, end: 20170819

REACTIONS (1)
  - Rash [Recovering/Resolving]

NARRATIVE: CASE EVENT DATE: 20170819
